FAERS Safety Report 6635500-7 (Version None)
Quarter: 2010Q1

REPORT INFORMATION
  Report Type: 
  Country: None (occurrence: None)
  Receive Date: 20100315
  Receipt Date: 20091006
  Transmission Date: 20100710
  Serious: No
  Sender: FDA-Public Use
  Company Number: US-ABBOTT-09P-163-0601762-00

PATIENT
  Age: 37 Year
  Sex: Male

DRUGS (3)
  1. DEPAKOTE [Suspect]
     Indication: EPILEPSY
  2. DEPAKOTE [Suspect]
  3. UNKNOWN MEDICATION [Concomitant]
     Indication: EPILEPSY

REACTIONS (1)
  - ABNORMAL BEHAVIOUR [None]
